FAERS Safety Report 5323362-X (Version None)
Quarter: 2007Q2

REPORT INFORMATION
  Report Type: 
  Country: None (occurrence: None)
  Receive Date: 20070514
  Receipt Date: 20070505
  Transmission Date: 20071010
  Serious: Yes (Hospitalization)
  Sender: FDA-Public Use
  Company Number: PHBS2007TR07677

PATIENT
  Sex: Male

DRUGS (2)
  1. SANDIMMUNE [Suspect]
     Indication: EYE INFLAMMATION
     Route: 065
  2. DELTACORTRIL [Concomitant]
     Indication: EYE INFLAMMATION
     Route: 065

REACTIONS (6)
  - BLOOD BILIRUBIN INCREASED [None]
  - BLOOD POTASSIUM INCREASED [None]
  - GAMMA-GLUTAMYLTRANSFERASE INCREASED [None]
  - LABORATORY TEST ABNORMAL [None]
  - MOVEMENT DISORDER [None]
  - MYOGLOBIN URINE PRESENT [None]
